FAERS Safety Report 10456664 (Version 1)
Quarter: 2014Q3

REPORT INFORMATION
  Report Type: Spontaneous
  Country: US (occurrence: None)
  Receive Date: 20140915
  Receipt Date: 20140915
  Transmission Date: 20150326
  Serious: Yes (Other)
  Sender: FDA-Public Use
  Company Number: None

PATIENT
  Age: 58 Year
  Sex: Female
  Weight: 68.95 kg

DRUGS (1)
  1. PRAMIPEXOLE DIHYDROCHLORIDE 0.25MG TORRENT PHARMACEUTICALS, MASANA, INDIA [Suspect]
     Active Substance: PRAMIPEXOLE DIHYDROCHLORIDE
     Indication: PARKINSON^S DISEASE
     Dosage: 3 TAB. 3 TIMES A DAY 5 1/2 HOUR ORAL
     Route: 048
     Dates: start: 20140804, end: 20140813

REACTIONS (1)
  - Product substitution issue [None]

NARRATIVE: CASE EVENT DATE: 20140805
